FAERS Safety Report 6728618-1 (Version None)
Quarter: 2010Q2

REPORT INFORMATION
  Report Type: 
  Country: None (occurrence: None)
  Receive Date: 20100517
  Receipt Date: 20100507
  Transmission Date: 20101027
  Serious: Yes (Other)
  Sender: FDA-Public Use
  Company Number: JP-PFIZER INC-2010057802

PATIENT
  Age: 80 Year
  Sex: Female

DRUGS (5)
  1. LIPITOR [Suspect]
     Dosage: 1 MG, 1X/DAY
     Route: 048
  2. SEROQUEL [Suspect]
     Indication: SCHIZOPHRENIA
     Dosage: 75 MG, 1X/DAY
     Route: 048
  3. RISPERDAL [Suspect]
     Dosage: 2 MG, 1X/DAY
     Route: 048
  4. AKINETON [Suspect]
     Dosage: 1 MG, 1X/DAY
     Route: 048
  5. BIOFERMIN [Suspect]
     Dosage: UNK
     Route: 048

REACTIONS (2)
  - HALLUCINATION [None]
  - HALLUCINATION, AUDITORY [None]
